FAERS Safety Report 10214328 (Version 1)
Quarter: 2014Q2

REPORT INFORMATION
  Report Type: Spontaneous
  Country: US (occurrence: US)
  Receive Date: 20140603
  Receipt Date: 20140603
  Transmission Date: 20141212
  Serious: Yes (Death)
  Sender: FDA-Public Use
  Company Number: US-FRI-1000067780

PATIENT
  Age: 57 Year
  Sex: Female

DRUGS (1)
  1. NAMENDA [Suspect]
     Indication: FRONTOTEMPORAL DEMENTIA
     Dates: start: 2009

REACTIONS (2)
  - Death [Fatal]
  - Off label use [Unknown]
